FAERS Safety Report 6654477-1 (Version None)
Quarter: 2010Q1

REPORT INFORMATION
  Report Type: 
  Country: None (occurrence: None)
  Receive Date: 20100326
  Receipt Date: 20100316
  Transmission Date: 20100710
  Serious: Yes (Other)
  Sender: FDA-Public Use
  Company Number: US-PFIZER INC-2010034829

PATIENT
  Sex: Male

DRUGS (2)
  1. LYRICA [Suspect]
     Dosage: UNK
  2. NITROUS OXIDE [Suspect]
     Indication: DENTAL CARE
     Dosage: UNK

REACTIONS (2)
  - DENTAL CARE [None]
  - DISSOCIATION [None]
